FAERS Safety Report 20701427 (Version 3)
Quarter: 2022Q2

REPORT INFORMATION
  Report Type: Other
  Country: US (occurrence: None)
  Receive Date: 20220412
  Receipt Date: 20220509
  Transmission Date: 20220721
  Serious: Yes (Hospitalization)
  Sender: FDA-Public Use
  Company Number: US-ROCHE-3073060

PATIENT
  Sex: Female

DRUGS (9)
  1. OCREVUS [Suspect]
     Active Substance: OCRELIZUMAB
     Indication: Relapsing-remitting multiple sclerosis
     Dosage: LAST OCREVUS INFUSION: 05/MAR/2021, 10/SEP/2021
     Route: 042
     Dates: start: 201704
  2. ASPIRIN [Concomitant]
     Active Substance: ASPIRIN
     Route: 048
  3. BACLOFEN [Concomitant]
     Active Substance: BACLOFEN
     Route: 048
  4. DULAGLUTIDE [Concomitant]
     Active Substance: DULAGLUTIDE
     Route: 058
  5. GLYBURIDE [Concomitant]
     Active Substance: GLYBURIDE
     Route: 048
  6. LISINOPRIL AND HYDROCHLOROTHIAZIDE [Concomitant]
     Active Substance: HYDROCHLOROTHIAZIDE\LISINOPRIL
     Route: 048
  7. METFORMIN HYDROCHLORIDE [Concomitant]
     Active Substance: METFORMIN HYDROCHLORIDE
     Indication: Product used for unknown indication
  8. PAROXETINE HYDROCHLORIDE [Concomitant]
     Active Substance: PAROXETINE HYDROCHLORIDE
     Route: 048
  9. PRAMIPEXOLE DIHYDROCHLORIDE [Concomitant]
     Active Substance: PRAMIPEXOLE DIHYDROCHLORIDE
     Route: 048

REACTIONS (4)
  - COVID-19 pneumonia [Unknown]
  - Fall [Unknown]
  - Face injury [Unknown]
  - Pulmonary embolism [Unknown]
